FAERS Safety Report 5684547-6 (Version None)
Quarter: 2008Q1

REPORT INFORMATION
  Report Type: 
  Country: None (occurrence: None)
  Receive Date: 20080328
  Receipt Date: 20070201
  Transmission Date: 20080703
  Serious: Yes (Hospitalization)
  Sender: FDA-Public Use
  Company Number: US-BRISTOL-MYERS SQUIBB COMPANY-13666359

PATIENT
  Age: 45 Year
  Sex: Female

DRUGS (1)
  1. CETUXIMAB [Suspect]
     Indication: BREAST CANCER
     Route: 042
     Dates: start: 20061207, end: 20061207

REACTIONS (2)
  - RESPIRATORY DISTRESS [None]
  - TACHYCARDIA [None]
